FAERS Safety Report 6328344-7 (Version None)
Quarter: 2009Q3

REPORT INFORMATION
  Report Type: 
  Country: None (occurrence: None)
  Receive Date: 20090825
  Receipt Date: 20090410
  Transmission Date: 20100115
  Serious: No
  Sender: FDA-Public Use
  Company Number: US-ABBOTT-09P-163-0568027-00

PATIENT
  Sex: Female
  Weight: 69.008 kg

DRUGS (3)
  1. SYNTHROID [Suspect]
     Indication: HYPOTHYROIDISM
     Route: 048
     Dates: start: 19970101, end: 20060101
  2. SYNTHROID [Suspect]
     Dosage: 110 MICROGRAM
     Route: 048
     Dates: start: 20060101, end: 20070101
  3. SYNTHROID [Suspect]
     Route: 048
     Dates: start: 20070101

REACTIONS (9)
  - ALOPECIA [None]
  - ARTHRALGIA [None]
  - FATIGUE [None]
  - MALAISE [None]
  - MEMORY IMPAIRMENT [None]
  - MITRAL VALVE PROLAPSE [None]
  - MUSCLE SPASMS [None]
  - PAIN IN EXTREMITY [None]
  - PALPITATIONS [None]
